FAERS Safety Report 15885303 (Version 1)
Quarter: 2019Q1

REPORT INFORMATION
  Report Type: Spontaneous
  Country: US (occurrence: US)
  Receive Date: 20190129
  Receipt Date: 20190129
  Transmission Date: 20190417
  Serious: No
  Sender: FDA-Public Use
  Company Number: US-US WORLDMEDS, LLC-USW201801-000052

PATIENT
  Sex: Female
  Weight: 49.89 kg

DRUGS (10)
  1. DURAGESIC [Concomitant]
     Active Substance: FENTANYL
     Indication: MUSCLE SPASTICITY
  2. MYOBLOC [Suspect]
     Active Substance: RIMABOTULINUMTOXINB
  3. TRIAMTERENE/HYDROCHLOROTHIAZIDE [Concomitant]
     Active Substance: HYDROCHLOROTHIAZIDE\TRIAMTERENE
     Indication: BLOOD PRESSURE MEASUREMENT
  4. SYNTHROID [Concomitant]
     Active Substance: LEVOTHYROXINE SODIUM
     Indication: THYROID DISORDER
  5. SAVELLA [Concomitant]
     Active Substance: MILNACIPRAN HYDROCHLORIDE
     Indication: ANTIDEPRESSANT THERAPY
  6. AMITIZA [Concomitant]
     Active Substance: LUBIPROSTONE
     Indication: CONSTIPATION
  7. COMPAZINE [Concomitant]
     Active Substance: PROCHLORPERAZINE MALEATE
     Indication: ANTIDEPRESSANT THERAPY
  8. NEURONTIN [Concomitant]
     Active Substance: GABAPENTIN
     Indication: ANTIDEPRESSANT THERAPY
  9. BACLOFEN. [Concomitant]
     Active Substance: BACLOFEN
     Indication: MUSCLE RELAXANT THERAPY
  10. LEVOTHROID [Concomitant]
     Active Substance: LEVOTHYROXINE SODIUM
     Indication: THYROID DISORDER

REACTIONS (2)
  - Injection site mass [Not Recovered/Not Resolved]
  - Product use complaint [Unknown]
